FAERS Safety Report 7072341-3 (Version None)
Quarter: 2010Q4

REPORT INFORMATION
  Report Type: 
  Country: None (occurrence: None)
  Receive Date: 20101029
  Receipt Date: 20100113
  Transmission Date: 20110411
  Serious: Yes (Hospitalization)
  Sender: FDA-Public Use
  Company Number: A0839274A

PATIENT
  Age: 78 Year
  Sex: Female

DRUGS (6)
  1. ADVAIR DISKUS 100/50 [Suspect]
     Indication: CHRONIC OBSTRUCTIVE PULMONARY DISEASE
     Route: 048
     Dates: start: 20050101
  2. ENALAPRIL MALEATE [Concomitant]
  3. HCT [Concomitant]
  4. DOXYCYCLINE [Concomitant]
  5. LORAZEPAM [Concomitant]
  6. ATENOLOL [Concomitant]

REACTIONS (1)
  - PNEUMONIA [None]
